FAERS Safety Report 17507954 (Version 1)
Quarter: 2020Q1

REPORT INFORMATION
  Report Type: Report from Study
  Country: US (occurrence: US)
  Receive Date: 20200305
  Receipt Date: 20200305
  Transmission Date: 20200409
  Serious: No
  Sender: FDA-Public Use
  Company Number: GXBR2015US000706

PATIENT
  Age: 1 Year
  Sex: Male
  Weight: 10.25 kg

DRUGS (2)
  1. SOMATROPIN (RHGH) LYOPHILIZED POWDER [Suspect]
     Active Substance: SOMATROPIN
     Indication: HYPOPITUITARISM
     Dosage: 0.6 MG, QD
     Route: 065
     Dates: start: 20130702, end: 20140710
  2. SOMATROPIN (RHGH) LYOPHILIZED POWDER [Suspect]
     Active Substance: SOMATROPIN
     Dosage: 0.2 MG, QD
     Route: 065

REACTIONS (1)
  - Heart rate increased [Recovered/Resolved]

NARRATIVE: CASE EVENT DATE: 20131007
